FAERS Safety Report 5352985-7 (Version None)
Quarter: 2007Q2

REPORT INFORMATION
  Report Type: 
  Country: None (occurrence: None)
  Receive Date: 20070611
  Receipt Date: 20070530
  Transmission Date: 20071010
  Serious: Yes (Hospitalization)
  Sender: FDA-Public Use
  Company Number: US-PFIZER INC-2007022143

PATIENT
  Sex: Female
  Weight: 120.2 kg

DRUGS (3)
  1. CHANTIX [Suspect]
     Indication: SMOKING CESSATION THERAPY
     Dates: start: 20070313, end: 20070316
  2. ACETYLSALICYLIC ACID SRT [Concomitant]
  3. VYTORIN [Concomitant]
     Dosage: TEXT:10/20 MG

REACTIONS (3)
  - ATRIAL FIBRILLATION [None]
  - CHEST PAIN [None]
  - PAIN IN EXTREMITY [None]
